FAERS Safety Report 15536243 (Version 1)
Quarter: 2018Q4

REPORT INFORMATION
  Report Type: Spontaneous
  Country: US (occurrence: US)
  Receive Date: 20181015
  Receipt Date: 20181015
  Transmission Date: 20190205
  Serious: No
  Sender: FDA-Public Use
  Company Number: None

PATIENT
  Age: 71 Year
  Sex: Female

DRUGS (1)
  1. FORTEO [Suspect]
     Active Substance: TERIPARATIDE
     Dates: start: 201801, end: 201809

REACTIONS (3)
  - Neck pain [None]
  - Pain in extremity [None]
  - Musculoskeletal pain [None]

NARRATIVE: CASE EVENT DATE: 20181011
